FAERS Safety Report 7808110-3 (Version None)
Quarter: 2011Q4

REPORT INFORMATION
  Report Type: 
  Country: None (occurrence: None)
  Receive Date: 20111011
  Receipt Date: 20110927
  Transmission Date: 20120403
  Serious: Yes (Hospitalization)
  Sender: FDA-Public Use
  Company Number: JP-GLAXOSMITHKLINE-B0695699A

PATIENT

DRUGS (6)
  1. UNKNOWN DRUG [Concomitant]
     Indication: PRODUCT USED FOR UNKNOWN INDICATION
     Route: 065
  2. UNKNOWN DRUG [Concomitant]
     Route: 065
  3. ENTECAVIR [Concomitant]
     Indication: HEPATITIS B
     Dates: start: 20100319
  4. LAMIVUDINE [Concomitant]
     Indication: HEPATITIS B
     Route: 048
     Dates: start: 20041017, end: 20100319
  5. HEPSERA [Suspect]
     Indication: HEPATITIS B
     Route: 048
     Dates: start: 20060328
  6. HEPSERA [Suspect]
     Route: 048
     Dates: start: 20100223, end: 20100319

REACTIONS (15)
  - RENAL IMPAIRMENT [None]
  - SPINAL COMPRESSION FRACTURE [None]
  - URINE PHOSPHORUS DECREASED [None]
  - HYPOPHOSPHATAEMIA [None]
  - RIB FRACTURE [None]
  - AMINOACIDURIA [None]
  - GAIT DISTURBANCE [None]
  - PAIN IN EXTREMITY [None]
  - OSTEOPOROSIS [None]
  - PELVIC FRACTURE [None]
  - OSTEONECROSIS [None]
  - PROTEIN URINE PRESENT [None]
  - METABOLIC ACIDOSIS [None]
  - FANCONI SYNDROME ACQUIRED [None]
  - RENAL TUBULAR DISORDER [None]
